FAERS Safety Report 10627843 (Version 1)
Quarter: 2014Q4

REPORT INFORMATION
  Report Type: Spontaneous
  Country: US (occurrence: US)
  Receive Date: 20141205
  Receipt Date: 20141205
  Transmission Date: 20150529
  Serious: Yes (Death, Hospitalization)
  Sender: FDA-Public Use
  Company Number: US-BRISTOL-MYERS SQUIBB COMPANY-21317151

PATIENT
  Age: 47 Year
  Sex: Male
  Weight: 83.08 kg

DRUGS (7)
  1. ERBITUX [Suspect]
     Active Substance: CETUXIMAB
     Indication: COLON CANCER METASTATIC
     Dates: start: 20140804
  2. MS CONTIN [Concomitant]
     Active Substance: MORPHINE SULFATE
  3. COMPAZINE [Concomitant]
     Active Substance: PROCHLORPERAZINE MALEATE
  4. OXYCODONE [Concomitant]
     Active Substance: OXYCODONE
  5. IRINOTECAN [Concomitant]
     Active Substance: IRINOTECAN
  6. LOVENOX [Concomitant]
     Active Substance: ENOXAPARIN SODIUM
  7. PERCOCET [Concomitant]
     Active Substance: ACETAMINOPHEN\OXYCODONE HYDROCHLORIDE

REACTIONS (1)
  - Malignant neoplasm progression [Fatal]
